FAERS Safety Report 9423506 (Version 1)
Quarter: 2013Q3

REPORT INFORMATION
  Report Type: Spontaneous
  Country: US (occurrence: US)
  Receive Date: 20130726
  Receipt Date: 20130726
  Transmission Date: 20140515
  Serious: No
  Sender: FDA-Public Use
  Company Number: US-UPSHER-SMITH LABORATORIES, INC.-13002501

PATIENT
  Age: 80 Year
  Sex: Female

DRUGS (5)
  1. AMANTADINE HYDROCHLORIDE [Suspect]
     Indication: DEPRESSED LEVEL OF CONSCIOUSNESS
     Dosage: 100 MG, BID
     Route: 065
     Dates: start: 20130712
  2. COUMADIN                           /00014802/ [Concomitant]
     Dosage: UNK
  3. CARDIZEM                           /00489701/ [Concomitant]
     Dosage: UNK
  4. LOPRESSOR [Suspect]
     Indication: PRODUCT USED FOR UNKNOWN INDICATION
     Dosage: UNK
     Route: 065
     Dates: end: 201307
  5. VASOTEC /00574902/ [Suspect]
     Indication: PRODUCT USED FOR UNKNOWN INDICATION
     Dosage: UNK
     Route: 065
     Dates: end: 201307

REACTIONS (2)
  - Blood pressure systolic increased [Not Recovered/Not Resolved]
  - Oedema [Recovering/Resolving]
